FAERS Safety Report 10151989 (Version 1)
Quarter: 2014Q2

REPORT INFORMATION
  Report Type: Spontaneous
  Country: US (occurrence: US)
  Receive Date: 20140505
  Receipt Date: 20140505
  Transmission Date: 20141212
  Serious: No
  Sender: FDA-Public Use
  Company Number: US-B.I. PHARMACEUTICALS,INC./RIDGEFIELD-2014-BI-18652BP

PATIENT
  Age: 61 Year
  Sex: Female

DRUGS (6)
  1. COMBIVENT [Suspect]
     Indication: ASTHMA
     Dosage: DOSE PER APPLICATION: 18 MCG / 103 MCG; DAILY DOSE: 144 MCG / 824 MCG
     Route: 055
     Dates: start: 2012, end: 20140410
  2. COMBIVENT [Suspect]
     Indication: ASTHMA
     Dosage: DOSE PER APPLICATION: 20 MCG/ 100 MCG; DAILY DOSE: 80 MCG / 400 MCG
     Route: 055
     Dates: start: 20140410
  3. FLUTICASONE PROPIONATE NASAL SPRAY [Concomitant]
     Dosage: FORMULATION: NASAL SPRAY; DOSE PER APPLICATION: 2 SPRAYS EACH NOSTRIL; DAILY DOSE: 4 SPRAYS EACH NOS
     Route: 045
  4. XOPENEX HFA [Concomitant]
     Indication: ASTHMA
     Dosage: FORMULATION: INHALATION AEROSOL; DOSE PER APPLICATION: 1 INHALATION ; DAILY DOSE: 4 INHALATIONS
     Route: 055
  5. QVAR [Concomitant]
     Indication: ASTHMA
     Dosage: FORMULATION: INHALATION AEROSOL; DOSE PER APPLICATION: 1 INHALATION ; DAILY DOSE: 2 INHALATION
     Route: 055
  6. ALBUTEROL NEBULIZER [Concomitant]
     Indication: ASTHMA
     Dosage: FORMULATION: INHALATION SOLUTION
     Route: 055

REACTIONS (3)
  - Off label use [Unknown]
  - Off label use [Not Recovered/Not Resolved]
  - Drug ineffective [Not Recovered/Not Resolved]
